FAERS Safety Report 10070602 (Version 1)
Quarter: 2014Q2

REPORT INFORMATION
  Report Type: Spontaneous
  Country: GB (occurrence: GB)
  Receive Date: 20140410
  Receipt Date: 20140410
  Transmission Date: 20141212
  Serious: Yes (Other)
  Sender: FDA-Public Use
  Company Number: PHHY2014GB040969

PATIENT
  Sex: 0

DRUGS (2)
  1. OXALIPLATIN [Suspect]
     Route: 062
  2. 5-FLUOROURACIL [Suspect]
     Route: 062

REACTIONS (1)
  - Arteriospasm coronary [Unknown]
